FAERS Safety Report 9207026 (Version 9)
Quarter: 2014Q1

REPORT INFORMATION
  Report Type: Report from Study
  Country: CA (occurrence: CA)
  Receive Date: 20130403
  Receipt Date: 20140204
  Transmission Date: 20141002
  Serious: Yes (Other)
  Sender: FDA-Public Use
  Company Number: CA-INCYTE CORPORATION-2013IN000293

PATIENT
  Sex: Female

DRUGS (10)
  1. JAKAVI [Suspect]
     Indication: MYELOFIBROSIS
     Dosage: 10 MG, BID
     Route: 048
     Dates: start: 201208
  2. HYDROXYUREA [Suspect]
     Indication: WHITE BLOOD CELL COUNT INCREASED
     Dosage: 2 DF, QD
     Route: 065
     Dates: start: 20130725
  3. HYDROXYUREA [Suspect]
     Dosage: 3 DF, QD
     Route: 065
  4. HYDROXYUREA [Suspect]
     Dosage: ALTERNATING BETWEEN TWO AND THREE TABLETS A DAY
     Route: 065
  5. HYDROXYUREA [Suspect]
     Dosage: 1 DF, QD
     Route: 065
     Dates: start: 20130909
  6. HYDROXYUREA [Suspect]
     Dosage: 2 DF, QD
     Route: 065
     Dates: start: 20130912, end: 20131028
  7. HYDROXYUREA [Suspect]
     Dosage: 1 TABLET EVERY OTHER DAY
     Dates: start: 20140120
  8. MULTIVITAMIN/VITAMINS NOS [Concomitant]
  9. ASA [Concomitant]
     Dosage: 81 UNK, UNK
  10. COLACE [Concomitant]

REACTIONS (16)
  - Immunodeficiency [Unknown]
  - Cellulitis [Recovered/Resolved]
  - Splenomegaly [Unknown]
  - Mouth haemorrhage [None]
  - Herpes zoster [Recovering/Resolving]
  - Haemoglobin decreased [Unknown]
  - Frequent bowel movements [Unknown]
  - Sciatica [Recovering/Resolving]
  - Pain [Recovering/Resolving]
  - Musculoskeletal chest pain [Unknown]
  - Abdominal pain [Unknown]
  - White blood cell count increased [Recovering/Resolving]
  - Transfusion reaction [None]
  - Headache [Unknown]
  - Platelet count decreased [Unknown]
  - Contusion [None]
